FAERS Safety Report 12620887 (Version 2)
Quarter: 2016Q3

REPORT INFORMATION
  Report Type: Spontaneous
  Country: US (occurrence: US)
  Receive Date: 20160804
  Receipt Date: 20160830
  Transmission Date: 20161109
  Serious: Yes (Other)
  Sender: FDA-Public Use
  Company Number: US-DRREDDYS-USA/USA/16/0081845

PATIENT
  Sex: Female

DRUGS (1)
  1. ZENATANE [Suspect]
     Active Substance: ISOTRETINOIN
     Indication: HIDRADENITIS
     Route: 065
     Dates: start: 20160314, end: 20160722

REACTIONS (4)
  - Drug ineffective [Unknown]
  - Mood altered [Unknown]
  - Depression [Recovering/Resolving]
  - Product quality issue [Unknown]
